FAERS Safety Report 20795461 (Version 1)
Quarter: 2022Q2

REPORT INFORMATION
  Report Type: Spontaneous
  Country: GB (occurrence: GB)
  Receive Date: 20220506
  Receipt Date: 20220506
  Transmission Date: 20220721
  Serious: Yes (Other)
  Sender: FDA-Public Use
  Company Number: None

PATIENT
  Age: 70 Year
  Sex: Male
  Weight: 92.07 kg

DRUGS (9)
  1. DORZOLAMIDE\TIMOLOL [Suspect]
     Active Substance: DORZOLAMIDE\TIMOLOL
     Dosage: 20 MG/ML PLUS 5 MG/ML
     Route: 047
  2. BENDROFLUMETHIAZIDE [Concomitant]
     Active Substance: BENDROFLUMETHIAZIDE
     Dosage: TAKE IN THE MORNING
     Dates: start: 20220127
  3. BRIMONIDINE. [Concomitant]
     Dosage: INSTILL 1 DROP TO THE AFFECTED EYE(S)
     Dates: start: 20220127
  4. CETIRIZINE [Concomitant]
     Active Substance: CETIRIZINE HYDROCHLORIDE
     Dates: start: 20220128
  5. CHLORPHENIRAMINE MALEATE [Concomitant]
     Active Substance: CHLORPHENIRAMINE MALEATE
     Dosage: FOUR TO SIX HOURLY
     Dates: start: 20220119
  6. EPIPEN [Concomitant]
     Active Substance: EPINEPHRINE
     Dates: start: 20220128
  7. FUROSEMIDE [Concomitant]
     Active Substance: FUROSEMIDE
     Dosage: TAKE IN THE MORNING
     Dates: start: 20220221
  8. BIMATOPROST\TIMOLOL [Concomitant]
     Active Substance: BIMATOPROST\TIMOLOL
     Dosage: 0.3MG/ML / 5MG/ML INSTIL TO BOTH EYES
     Dates: start: 20220419
  9. PREDNISOLONE [Concomitant]
     Active Substance: PREDNISOLONE
     Dates: start: 20220119

REACTIONS (2)
  - Pharyngeal swelling [Unknown]
  - Swollen tongue [Recovered/Resolved]
